FAERS Safety Report 25849727 (Version 2)
Quarter: 2025Q4

REPORT INFORMATION
  Report Type: Spontaneous
  Country: JP (occurrence: JP)
  Receive Date: 20250926
  Receipt Date: 20251017
  Transmission Date: 20260118
  Serious: Yes (Death, Life-Threatening, Hospitalization, Other)
  Sender: AMGEN
  Company Number: JP-KYOWAKIRIN-2025KK014604

PATIENT
  Age: 76 Year
  Sex: Male

DRUGS (21)
  1. DARBEPOETIN ALFA [Suspect]
     Active Substance: DARBEPOETIN ALFA
     Indication: Nephrogenic anaemia
     Dosage: UNK
     Route: 065
  2. EVOCALCET [Suspect]
     Active Substance: EVOCALCET
     Indication: Product used for unknown indication
     Dosage: 2 MG, ONCE DAILY AFTER BREAKFAST (6-DAY SUPPLY, 12 TABLETS TOTAL)
     Route: 048
     Dates: start: 202407, end: 20250703
  3. DAPRODUSTAT [Suspect]
     Active Substance: DAPRODUSTAT
     Indication: Nephrogenic anaemia
     Dosage: 4 MG
     Route: 048
     Dates: start: 202404
  4. DAPRODUSTAT [Suspect]
     Active Substance: DAPRODUSTAT
     Dosage: 8 MG
     Route: 048
     Dates: start: 20240625, end: 20240911
  5. DAPRODUSTAT [Suspect]
     Active Substance: DAPRODUSTAT
     Dosage: 6 MG
     Route: 048
     Dates: start: 20240912
  6. DAPRODUSTAT [Suspect]
     Active Substance: DAPRODUSTAT
     Dosage: 4 MG
     Route: 048
     Dates: start: 20241116
  7. DAPRODUSTAT [Suspect]
     Active Substance: DAPRODUSTAT
     Dosage: 4 MG, QD, AFTER DINNER (9-DAY SUPPLY, 9 TABLETS TOTAL)
     Route: 065
     Dates: end: 20250703
  8. DAYVIGO [Concomitant]
     Active Substance: LEMBOREXANT
     Indication: Product used for unknown indication
     Dosage: 5 MG, ONCE DAILY BEFORE BEDTIME (4 TABLETS FOR 4 DAYS)
     Route: 048
     Dates: end: 20250703
  9. AMLODIPINE [Concomitant]
     Active Substance: AMLODIPINE BESYLATE
     Indication: Product used for unknown indication
     Dosage: 5 MG, TWICE A DAY AFTER BREAKFAST AND DINNER (6-DAY SUPPLY, 13 TABLETS TOTAL)
     Route: 048
     Dates: end: 20250703
  10. EBASTINE [Concomitant]
     Active Substance: EBASTINE
     Indication: Product used for unknown indication
     Dosage: 10 MG, ONCE DAILY AFTER DINNER (7-DAY SUPPLY, 7 TABLETS TOTAL)
     Route: 048
     Dates: end: 20250703
  11. ALFACALCIDOL [Concomitant]
     Active Substance: ALFACALCIDOL
     Indication: Product used for unknown indication
     Dosage: 0.5 UG, ONCE DAILY AFTER BREAKFAST (6-DAY SUPPLY, 6 CAPS TOTAL)
     Route: 048
     Dates: end: 20250703
  12. ROSUVASTATIN [Concomitant]
     Active Substance: ROSUVASTATIN
     Indication: Product used for unknown indication
     Dosage: 2.5 MG, ONCE DAILY AFTER BREAKFAST (6-DAY SUPPLY, 6 TABLETS TOTAL)
     Route: 048
     Dates: end: 20250703
  13. FUROSEMIDE [Concomitant]
     Active Substance: FUROSEMIDE
     Indication: Product used for unknown indication
     Dosage: 10 MG, ONCE A DAY AFTER BREAKFAST (6 DAYS DIVIDED. 6 TABLETS IN TOTAL)
     Route: 048
     Dates: end: 20250703
  14. BISOPROLOL FUMARATE [Concomitant]
     Active Substance: BISOPROLOL FUMARATE
     Indication: Product used for unknown indication
     Dosage: 0.75 DF, ONCE A DAY AFTER BREAKFAST (6 DAYS DIVIDED. 4.5 TABLETS IN TOTAL)
     Route: 048
     Dates: end: 20250703
  15. ASPIRIN [Concomitant]
     Active Substance: ASPIRIN
     Indication: Product used for unknown indication
     Dosage: 100 MG, ONCE A DAY AFTER BREAKFAST (6 DAYS DIVIDED. 6 TABLETS IN TOTAL)
     Route: 048
     Dates: end: 20250703
  16. LANSOPRAZOLE [Concomitant]
     Active Substance: LANSOPRAZOLE
     Indication: Product used for unknown indication
     Dosage: 15 MG, ONCE DAILY AFTER BREAKFAST (6-DAY SUPPLY, 6 TABLETS TOTAL)
     Route: 048
     Dates: end: 20250703
  17. FEBUXOSTAT [Concomitant]
     Active Substance: FEBUXOSTAT
     Indication: Product used for unknown indication
     Dosage: 10 MG, ONCE DAILY AFTER BREAKFAST (6-DAY SUPPLY, 6 TABLETS TOTAL)
     Route: 048
     Dates: end: 20250703
  18. Memantine hydrochloride od [Concomitant]
     Indication: Product used for unknown indication
     Dosage: 10 MG, ONCE DAILY AFTER BREAKFAST (6 TABLETS IN TOTAL, 6 DAYS)
     Route: 048
     Dates: end: 20250703
  19. CLOPIDOGREL [Concomitant]
     Active Substance: CLOPIDOGREL BISULFATE
     Indication: Product used for unknown indication
     Dosage: 75 MG, ONCE DAILY AFTER BREAKFAST (6 TABLETS FOR 6 DAYS)
     Route: 048
     Dates: end: 20250703
  20. VALSARTAN [Concomitant]
     Active Substance: VALSARTAN
     Indication: Product used for unknown indication
     Dosage: 40 MG, ONCE DAILY AFTER BREAKFAST (3-DAY SUPPLY, 3 TABLETS TOTAL)
     Route: 048
     Dates: end: 20250703
  21. ACETAMINOPHEN\TRAMADOL HYDROCHLORIDE [Concomitant]
     Active Substance: ACETAMINOPHEN\TRAMADOL HYDROCHLORIDE
     Indication: Product used for unknown indication
     Dosage: 1DF, TWICE A DAY AFTER BREAKFAST AND DINNER (19 DAYS, TOTAL 39 TABLETS)
     Route: 048
     Dates: end: 20250703

REACTIONS (24)
  - Lung neoplasm malignant [Fatal]
  - Metastases to lung [Fatal]
  - Metastases to liver [Fatal]
  - Swelling face [Fatal]
  - Swelling [Fatal]
  - Hepatic function abnormal [Fatal]
  - Peripheral arterial occlusive disease [Fatal]
  - Lymphadenopathy [Fatal]
  - Pleural effusion [Fatal]
  - Intervertebral disc degeneration [Fatal]
  - Cerebral infarction [Fatal]
  - Arteriosclerosis [Fatal]
  - Rib fracture [Fatal]
  - Renal atrophy [Fatal]
  - Interstitial lung disease [Fatal]
  - Pleurisy [Fatal]
  - Vomiting [Fatal]
  - Diarrhoea [Fatal]
  - Pyrexia [Fatal]
  - Enterocolitis [Fatal]
  - Metastases to lymph nodes [Fatal]
  - Decreased appetite [Fatal]
  - Metastases to pleura [Fatal]
  - Cholelithiasis [Fatal]

NARRATIVE: CASE EVENT DATE: 20250220
